FAERS Safety Report 10047026 (Version 1)
Quarter: 2014Q1

REPORT INFORMATION
  Report Type: Spontaneous
  Country: US (occurrence: None)
  Receive Date: 20140328
  Receipt Date: 20140328
  Transmission Date: 20141002
  Serious: Yes (Hospitalization)
  Sender: FDA-Public Use
  Company Number: None

PATIENT
  Age: 49 Year
  Sex: Male
  Weight: 79.2 kg

DRUGS (8)
  1. PAZOPANIB [Suspect]
     Indication: ANGIOSARCOMA
     Dosage: CYCLE 1
     Route: 048
     Dates: start: 20140204, end: 20140223
  2. BENICAR [Concomitant]
  3. LOVENOX (ENOXAPARIN) [Concomitant]
  4. METOPROLOL SUCCINATE [Concomitant]
  5. COMPAZINE [Concomitant]
  6. HYDROCODONE [Concomitant]
  7. MORPHINE SULFATE ER [Concomitant]
  8. ZOFRAN [Concomitant]

REACTIONS (2)
  - Pericardial effusion [None]
  - Pleural effusion [None]
